FAERS Safety Report 5573367-9 (Version None)
Quarter: 2007Q4

REPORT INFORMATION
  Report Type: 
  Country: None (occurrence: None)
  Receive Date: 20071226
  Receipt Date: 20071221
  Transmission Date: 20080405
  Serious: Yes (Death)
  Sender: FDA-Public Use
  Company Number: HQWYE008101DEC06

PATIENT
  Sex: Male
  Weight: 76 kg

DRUGS (6)
  1. GEMTUZUMAB OZOGAMICIN [Suspect]
     Indication: ACUTE MYELOID LEUKAEMIA
     Dosage: 10 MG (CUMULATIVE DOSE 10 MG)
     Route: 065
     Dates: start: 20061011
  2. ACYCLOVIR [Concomitant]
     Dosage: UNKNOWN
     Route: 065
     Dates: start: 20061031, end: 20061107
  3. CYTARABINE [Suspect]
     Indication: ACUTE MYELOID LEUKAEMIA
     Dosage: 120 MG (CUMULATIVE DOSE 1190 MG)
     Route: 065
     Dates: start: 20061030, end: 20061104
  4. ITRACONAZOLE [Concomitant]
     Dosage: UNKNOWN
     Route: 065
     Dates: start: 20061013, end: 20061114
  5. MITOXANTRONE HCL [Suspect]
     Indication: ACUTE MYELOID LEUKAEMIA
     Dosage: 12 MG (CUMULATIVE DOSE 36 MG)
     Route: 065
     Dates: start: 20061030, end: 20061103
  6. ETOPOSIDE [Suspect]
     Indication: ACUTE MYELOID LEUKAEMIA
     Dosage: 170 MG (CUMLATIVE DOSE 510 MG)
     Route: 065
     Dates: start: 20061030, end: 20061101

REACTIONS (2)
  - HEPATIC FAILURE [None]
  - MULTI-ORGAN FAILURE [None]
